FAERS Safety Report 25934117 (Version 1)
Quarter: 2025Q4

REPORT INFORMATION
  Report Type: Spontaneous
  Country: US (occurrence: US)
  Receive Date: 20251017
  Receipt Date: 20251017
  Transmission Date: 20260118
  Serious: No
  Sender: GALDERMA
  Company Number: US-GALDERMA-US2025018755

PATIENT

DRUGS (1)
  1. NEMLUVIO [Suspect]
     Active Substance: NEMOLIZUMAB-ILTO
     Indication: Neurodermatitis
     Dosage: UNK
     Route: 058
     Dates: start: 20250101, end: 20250101

REACTIONS (3)
  - Pruritus [Not Recovered/Not Resolved]
  - Pain [Not Recovered/Not Resolved]
  - Product dose omission issue [Recovered/Resolved]

NARRATIVE: CASE EVENT DATE: 20250101
